FAERS Safety Report 24985568 (Version 1)
Quarter: 2025Q1

REPORT INFORMATION
  Report Type: Spontaneous
  Country: US (occurrence: US)
  Receive Date: 20250219
  Receipt Date: 20250219
  Transmission Date: 20250408
  Serious: Yes (Other)
  Sender: ADAPTIMMUNE
  Company Number: US-ADAPTCSP-2025-AER-00003

PATIENT
  Age: 41 Year
  Sex: Male

DRUGS (1)
  1. TECELRA [Suspect]
     Active Substance: AFAMITRESGENE AUTOLEUCEL
     Indication: Synovial sarcoma

REACTIONS (5)
  - Hallucination [Recovered/Resolved]
  - Rash [Recovered/Resolved]
  - Pyrexia [Recovered/Resolved]
  - Pain [Recovered/Resolved]
  - Fatigue [Not Recovered/Not Resolved]
